FAERS Safety Report 6533020-1 (Version None)
Quarter: 2010Q1

REPORT INFORMATION
  Report Type: 
  Country: None (occurrence: None)
  Receive Date: 20100111
  Receipt Date: 20100106
  Transmission Date: 20100710
  Serious: Yes (Hospitalization)
  Sender: FDA-Public Use
  Company Number: US-WYE-H12456009

PATIENT
  Sex: Female
  Weight: 105 kg

DRUGS (22)
  1. ZOSYN [Suspect]
     Indication: ESCHERICHIA SEPSIS
     Route: 042
     Dates: start: 20091127
  2. ASCORBIC ACID [Concomitant]
  3. AGGRENOX [Concomitant]
  4. COREG [Concomitant]
  5. CLONIDINE [Concomitant]
  6. DULOXETINE [Concomitant]
  7. NEURONTIN [Concomitant]
  8. LOPID [Concomitant]
  9. ROBITUSSIN [Concomitant]
  10. APIDRA [Concomitant]
  11. LANTUS [Concomitant]
  12. REGLAN [Concomitant]
  13. MORPHINE [Concomitant]
  14. LOVAZA [Concomitant]
  15. METAMUCIL [Concomitant]
  16. POTASSIUM CHLORIDE [Concomitant]
  17. MAGNESIUM OXIDE [Concomitant]
  18. QUETIAPINE FUMARATE [Concomitant]
  19. SULFADIAZINE SILVER [Concomitant]
  20. ZINC SULFATE [Concomitant]
  21. FERROUS SULFATE TAB [Concomitant]
  22. TYLENOL (CAPLET) [Concomitant]

REACTIONS (2)
  - BLISTER [None]
  - INFUSION SITE EXTRAVASATION [None]
